FAERS Safety Report 15889896 (Version 1)
Quarter: 2019Q1

REPORT INFORMATION
  Report Type: Spontaneous
  Country: US (occurrence: US)
  Receive Date: 20190107
  Receipt Date: 20190107
  Transmission Date: 20190417
  Serious: Yes (Hospitalization)
  Sender: FDA-Public Use
  Company Number: None

PATIENT
  Age: 88 Year
  Sex: Male
  Weight: 84 kg

DRUGS (1)
  1. ALFUZOSIN [Suspect]
     Active Substance: ALFUZOSIN
     Indication: BENIGN PROSTATIC HYPERPLASIA
     Dosage: 10 MG, AT BEDTIME, PO
     Route: 048
     Dates: start: 20150612, end: 20181123

REACTIONS (3)
  - Oedema peripheral [None]
  - Orthostatic hypotension [None]
  - Syncope [None]

NARRATIVE: CASE EVENT DATE: 20181123
